FAERS Safety Report 9215401 (Version 1)
Quarter: 2013Q2

REPORT INFORMATION
  Report Type: Spontaneous
  Country: US (occurrence: US)
  Receive Date: 20130405
  Receipt Date: 20130405
  Transmission Date: 20140414
  Serious: No
  Sender: FDA-Public Use
  Company Number: US-PFIZER INC-2013104708

PATIENT
  Age: 55 Year
  Sex: Female
  Weight: 65.76 kg

DRUGS (9)
  1. XELJANZ [Suspect]
     Dosage: 5 MG, 2X/DAY
     Route: 048
  2. ATENOLOL [Concomitant]
     Dosage: 50 MG, UNK
  3. ESTRADIOL [Concomitant]
     Dosage: 0.0375 MG
  4. PREDNISONE [Concomitant]
     Dosage: 5 MG, UNK
  5. FISH OIL [Concomitant]
     Dosage: UNK
  6. VITAMIN D [Concomitant]
     Dosage: 1000 IU, UNK
  7. ALEVE [Concomitant]
     Dosage: 220 MG, UNK
  8. CALCIUM [Concomitant]
     Dosage: 500, UNK
  9. BLACK COHOSH [Concomitant]
     Dosage: 1000 MG, UNK

REACTIONS (3)
  - Sinusitis [Unknown]
  - Headache [Unknown]
  - Insomnia [Unknown]
